FAERS Safety Report 5410226-6 (Version None)
Quarter: 2007Q3

REPORT INFORMATION
  Report Type: 
  Country: None (occurrence: None)
  Receive Date: 20070713
  Receipt Date: 20070415
  Transmission Date: 20080115
  Serious: No
  Sender: FDA-Public Use
  Company Number: 2007SP001360

PATIENT
  Age: 49 Year
  Sex: Female
  Weight: 99.7913 kg

DRUGS (7)
  1. LUNESTA [Suspect]
     Indication: INSOMNIA
     Dosage: 3 MG; ORAL
     Route: 048
     Dates: start: 20070316
  2. PERCOCET [Concomitant]
  3. RELAFEN [Concomitant]
  4. TRIAMTERENE [Concomitant]
  5. OXYCODONE HCL [Concomitant]
  6. SIMVASTATIN [Concomitant]
  7. LYRICA [Concomitant]

REACTIONS (2)
  - DRUG INEFFECTIVE [None]
  - INSOMNIA [None]
